FAERS Safety Report 12785136 (Version 1)
Quarter: 2016Q3

REPORT INFORMATION
  Report Type: Report from Study
  Country: US (occurrence: US)
  Receive Date: 20160927
  Receipt Date: 20160927
  Transmission Date: 20161109
  Serious: Yes (Other)
  Sender: FDA-Public Use
  Company Number: US-BAYER-2016-128363

PATIENT
  Age: 75 Year
  Sex: Female

DRUGS (3)
  1. NEXAVAR [Suspect]
     Active Substance: SORAFENIB
     Indication: HEPATIC CANCER
     Dosage: 200 MG, BID
     Route: 048
     Dates: start: 20160413, end: 2016
  2. XANAX [Concomitant]
     Active Substance: ALPRAZOLAM
     Dosage: 1 DF, TID
  3. CELEXA [Suspect]
     Active Substance: CITALOPRAM HYDROBROMIDE
     Dosage: 40 MG IN AM AND 20 MG IN EVENING

REACTIONS (6)
  - Condition aggravated [None]
  - Multiple allergies [None]
  - Malaise [None]
  - Drug interaction [None]
  - Chest pain [None]
  - Weight decreased [None]
